FAERS Safety Report 8105013-4 (Version None)
Quarter: 2012Q1

REPORT INFORMATION
  Report Type: 
  Country: None (occurrence: None)
  Receive Date: 20120201
  Receipt Date: 20120123
  Transmission Date: 20120608
  Serious: Yes (Hospitalization)
  Sender: FDA-Public Use
  Company Number: ES-GLAXOSMITHKLINE-B0777113A

PATIENT
  Age: 80 Year
  Sex: Male
  Weight: 85 kg

DRUGS (8)
  1. ENEAS (ENALAPRIL MALEATE + NITRENDIPINE) [Concomitant]
     Indication: HYPERTENSION
     Route: 048
     Dates: start: 20110208, end: 20111115
  2. OMEPRAZOLE [Concomitant]
     Dosage: 20MG PER DAY
     Route: 048
  3. FLUVASTATIN SODIUM [Concomitant]
     Indication: HYPERCHOLESTEROLAEMIA
     Dosage: 80MG PER DAY
     Route: 048
     Dates: start: 20090101
  4. DUTASTERIDE/TAMSULOSIN HYDROCHLORIDE [Suspect]
     Indication: BENIGN PROSTATIC HYPERPLASIA
     Route: 048
     Dates: start: 20111004
  5. ARCOXIA [Suspect]
     Indication: OSTEOARTHRITIS
     Dosage: 60MG PER DAY
     Route: 048
     Dates: start: 20111021
  6. ASPIRIN [Concomitant]
     Indication: ISCHAEMIC HEART DISEASE PROPHYLAXIS
     Dosage: 300MG PER DAY
     Route: 048
     Dates: start: 19980101, end: 20111115
  7. CALCIUM CARBONATE + CHOLECALCIFEROL [Concomitant]
     Route: 048
  8. MYOLASTAN TETRAZEPAM [Concomitant]
     Dosage: 50MG PER DAY
     Route: 048

REACTIONS (2)
  - CARDIAC FAILURE [None]
  - ATRIAL FIBRILLATION [None]
